FAERS Safety Report 19844409 (Version 2)
Quarter: 2022Q2

REPORT INFORMATION
  Report Type: Other
  Country: TR (occurrence: None)
  Receive Date: 20210917
  Receipt Date: 20220630
  Transmission Date: 20220721
  Serious: Yes (Hospitalization)
  Sender: FDA-Public Use
  Company Number: TR-ROCHE-2723050

PATIENT
  Age: 46 Year
  Sex: Female
  Weight: 94 kg

DRUGS (15)
  1. OCRELIZUMAB [Suspect]
     Active Substance: OCRELIZUMAB
     Indication: Relapsing-remitting multiple sclerosis
     Dosage: MOST RECENT DATE OF OCRELIZUMAB PRIOR TO SAE ONSET 25/JUN/2020 (DOSE: 600MG/500 ML (INFUSION STARTED
     Route: 042
     Dates: start: 20200625, end: 20200625
  2. OCRELIZUMAB [Suspect]
     Active Substance: OCRELIZUMAB
     Dosage: DOSE: 300 MG/250 ML (INFUSION STARTED AT 10.55 AND ENDED AT 13.55)
     Route: 042
     Dates: start: 20191219, end: 20191219
  3. OCRELIZUMAB [Suspect]
     Active Substance: OCRELIZUMAB
     Dosage: DOSE: 300 MG/250 ML (INFUSION STARTED AT 11.50 AND ENDED AT 14.50)
     Route: 042
     Dates: start: 20191205, end: 20191205
  4. METHYLPREDNISOLONE [Concomitant]
     Active Substance: METHYLPREDNISOLONE
     Indication: Premedication
     Route: 042
     Dates: start: 20191205, end: 20191205
  5. METHYLPREDNISOLONE [Concomitant]
     Active Substance: METHYLPREDNISOLONE
     Route: 042
     Dates: start: 20191219, end: 20191219
  6. METHYLPREDNISOLONE [Concomitant]
     Active Substance: METHYLPREDNISOLONE
     Route: 042
     Dates: start: 20200625, end: 20200625
  7. DRAMAMINE [Concomitant]
     Active Substance: DIMENHYDRINATE
     Indication: Premedication
     Route: 048
     Dates: start: 20191205, end: 20191205
  8. DRAMAMINE [Concomitant]
     Active Substance: DIMENHYDRINATE
     Route: 048
     Dates: start: 20191219, end: 20191219
  9. DRAMAMINE [Concomitant]
     Active Substance: DIMENHYDRINATE
     Route: 048
     Dates: start: 20200625, end: 20200625
  10. ACETAMINOPHEN [Concomitant]
     Active Substance: ACETAMINOPHEN
     Indication: Premedication
     Route: 048
     Dates: start: 20191205, end: 20191205
  11. ACETAMINOPHEN [Concomitant]
     Active Substance: ACETAMINOPHEN
     Route: 048
     Dates: start: 20191219, end: 20191219
  12. ACETAMINOPHEN [Concomitant]
     Active Substance: ACETAMINOPHEN
     Route: 048
     Dates: start: 20200625, end: 20200625
  13. PHENIRAMINE [Concomitant]
     Active Substance: PHENIRAMINE
     Indication: Premedication
     Route: 042
     Dates: start: 20191205, end: 20191205
  14. PHENIRAMINE [Concomitant]
     Active Substance: PHENIRAMINE
     Route: 042
     Dates: start: 20191219, end: 20191219
  15. PHENIRAMINE [Concomitant]
     Active Substance: PHENIRAMINE
     Route: 042
     Dates: start: 20200625, end: 20200625

REACTIONS (1)
  - Appendicitis [Recovered/Resolved]

NARRATIVE: CASE EVENT DATE: 20201111
